FAERS Safety Report 8114461-8 (Version None)
Quarter: 2012Q1

REPORT INFORMATION
  Report Type: 
  Country: None (occurrence: None)
  Receive Date: 20120206
  Receipt Date: 20120125
  Transmission Date: 20120608
  Serious: No
  Sender: FDA-Public Use
  Company Number: US-BIOGENIDEC-2012BI003139

PATIENT
  Age: 26 Year
  Sex: Female

DRUGS (3)
  1. AVONEX [Suspect]
     Indication: MULTIPLE SCLEROSIS
     Route: 030
     Dates: start: 20111227, end: 20120103
  2. AVONEX [Suspect]
     Route: 030
     Dates: start: 20120110, end: 20120117
  3. AVONEX [Suspect]
     Route: 030
     Dates: start: 20120124

REACTIONS (5)
  - MENTAL IMPAIRMENT [None]
  - MUSCULOSKELETAL PAIN [None]
  - DIZZINESS [None]
  - BALANCE DISORDER [None]
  - FATIGUE [None]
